FAERS Safety Report 5597828-1 (Version None)
Quarter: 2007Q4

REPORT INFORMATION
  Report Type: 
  Country: None (occurrence: None)
  Receive Date: 20071221
  Receipt Date: 20070911
  Transmission Date: 20080405
  Serious: Yes (Hospitalization)
  Sender: FDA-Public Use
  Company Number: US-2007-034063

PATIENT
  Age: 74 Year
  Sex: Female
  Weight: 59 kg

DRUGS (6)
  1. BETAPACE [Suspect]
     Indication: ATRIAL FIBRILLATION
     Dosage: 80 MG ; 160 MG, 1X/DAY
     Dates: start: 20070101
  2. VALSARTAN [Concomitant]
  3. ACETYLSALICYLIC ACID SRT [Concomitant]
  4. CONJUGATED ESTROGENS [Concomitant]
  5. VITAMIN D [Concomitant]
  6. ATIVAN [Concomitant]

REACTIONS (2)
  - BLOOD PRESSURE DECREASED [None]
  - HEART RATE DECREASED [None]
